FAERS Safety Report 8227179-8 (Version None)
Quarter: 2012Q1

REPORT INFORMATION
  Report Type: 
  Country: None (occurrence: None)
  Receive Date: 20120322
  Receipt Date: 20120316
  Transmission Date: 20120608
  Serious: Yes (Other)
  Sender: FDA-Public Use
  Company Number: US-JNJFOC-20120208839

PATIENT
  Sex: Male
  Weight: 101.61 kg

DRUGS (6)
  1. FISH OIL [Concomitant]
     Indication: DYSLIPIDAEMIA
     Dates: start: 20100901
  2. ATACAND [Concomitant]
     Indication: HYPERTENSION
     Dates: start: 20100601
  3. XARELTO [Suspect]
     Indication: ATRIAL FIBRILLATION
     Route: 065
     Dates: start: 20120126, end: 20120202
  4. TEKTURNA [Concomitant]
     Indication: HYPERTENSION
     Dates: start: 20101201
  5. BYSTOLIC [Concomitant]
     Indication: HYPERTENSION
     Dates: start: 20120201
  6. ASPIRIN [Concomitant]
     Indication: PROPHYLAXIS
     Dates: start: 20100401

REACTIONS (1)
  - LIVER FUNCTION TEST ABNORMAL [None]
